FAERS Safety Report 7725512-4 (Version None)
Quarter: 2011Q3

REPORT INFORMATION
  Report Type: 
  Country: None (occurrence: None)
  Receive Date: 20110902
  Receipt Date: 20110527
  Transmission Date: 20111222
  Serious: No
  Sender: FDA-Public Use
  Company Number: US-BRISTOL-MYERS SQUIBB COMPANY-15788946

PATIENT

DRUGS (2)
  1. ONGLYZA [Suspect]
  2. KOMBIGLYZE XR [Suspect]

REACTIONS (3)
  - BONE PAIN [None]
  - ARTHRALGIA [None]
  - JOINT SWELLING [None]
